FAERS Safety Report 19671042 (Version 2)
Quarter: 2021Q3

REPORT INFORMATION
  Report Type: Report from Study
  Country: US (occurrence: US)
  Receive Date: 20210806
  Receipt Date: 20210813
  Transmission Date: 20211014
  Serious: Yes (Hospitalization)
  Sender: FDA-Public Use
  Company Number: US-GILEAD-2021-0540163

PATIENT
  Age: 54 Year
  Sex: Female

DRUGS (3)
  1. TADALAFIL. [Concomitant]
     Active Substance: TADALAFIL
  2. AMBRISENTAN [Suspect]
     Active Substance: AMBRISENTAN
     Indication: PULMONARY ARTERIAL HYPERTENSION
     Dosage: 10 MG, QD
     Route: 048
     Dates: start: 20150210
  3. UPTRAVI [Concomitant]
     Active Substance: SELEXIPAG

REACTIONS (8)
  - Oedema [Unknown]
  - Fluid retention [Unknown]
  - Nasopharyngitis [Unknown]
  - Cough [Unknown]
  - Abdominal pain [Unknown]
  - Renal disorder [Unknown]
  - Dehydration [Unknown]
  - Ill-defined disorder [Unknown]
